FAERS Safety Report 13132698 (Version 2)
Quarter: 2017Q1

REPORT INFORMATION
  Report Type: Spontaneous
  Country: US (occurrence: US)
  Receive Date: 20170120
  Receipt Date: 20170329
  Transmission Date: 20170428
  Serious: Yes (Hospitalization, Other)
  Sender: FDA-Public Use
  Company Number: US-AMGEN-USASP2017008519

PATIENT
  Sex: Male

DRUGS (1)
  1. XGEVA [Suspect]
     Active Substance: DENOSUMAB
     Indication: PROSTATE CANCER METASTATIC
     Dosage: UNK
     Route: 065

REACTIONS (7)
  - Fall [Unknown]
  - Atelectasis [Unknown]
  - Osteosclerosis [Unknown]
  - Cough [Unknown]
  - Atypical femur fracture [Unknown]
  - Pathological fracture [Unknown]
  - Bone fragmentation [Unknown]
